FAERS Safety Report 10722440 (Version 2)
Quarter: 2015Q2

REPORT INFORMATION
  Report Type: Spontaneous
  Country: CA (occurrence: CA)
  Receive Date: 20150120
  Receipt Date: 20150505
  Transmission Date: 20150821
  Serious: Yes (Other)
  Sender: FDA-Public Use
  Company Number: CA-ROCHE-1522722

PATIENT
  Age: 58 Year
  Sex: Male

DRUGS (7)
  1. DIAZEPAM. [Suspect]
     Active Substance: DIAZEPAM
     Indication: SLEEP DISORDER THERAPY
     Dosage: THERAPY DURATION : 1 DAY
     Route: 048
  2. CALCIUM CITRATE [Concomitant]
     Active Substance: CALCIUM CITRATE
  3. COTAZYM [Concomitant]
     Active Substance: PANCRELIPASE
  4. KAOPECTATE (UNK INGREDIENTS) [Concomitant]
     Route: 048
  5. LOMOTIL (CANADA) [Concomitant]
  6. MORPHINE [Concomitant]
     Active Substance: MORPHINE
  7. DIAZEPAM. [Suspect]
     Active Substance: DIAZEPAM
     Indication: ANXIETY
     Route: 060

REACTIONS (6)
  - Product taste abnormal [Unknown]
  - Palpitations [Unknown]
  - Vomiting [Unknown]
  - Incorrect route of drug administration [Unknown]
  - Drug withdrawal convulsions [Unknown]
  - Tinnitus [Unknown]
